FAERS Safety Report 7306186-3 (Version None)
Quarter: 2011Q1

REPORT INFORMATION
  Report Type: 
  Country: None (occurrence: None)
  Receive Date: 20110209
  Receipt Date: 20110131
  Transmission Date: 20110831
  Serious: Yes (Death)
  Sender: FDA-Public Use
  Company Number: 025532

PATIENT
  Sex: Male
  Weight: 102 kg

DRUGS (6)
  1. PREDNISONE [Suspect]
     Dosage: (VARIABLE)
     Dates: start: 20090825
  2. LOPERAMIDE [Concomitant]
  3. POTASSIUM CHLORIDE [Concomitant]
  4. MAGNESIUM OXIDE [Concomitant]
  5. FLUCONAZOLE [Concomitant]
  6. CIMZIA [Suspect]
     Indication: CROHN'S DISEASE
     Dosage: (200 MG 1X/2 WEEKS  SUBCUTANEOUS)
     Route: 058
     Dates: start: 20100204

REACTIONS (3)
  - MYOCARDIAL INFARCTION [None]
  - ANAL ABSCESS [None]
  - ARRHYTHMIA [None]
